FAERS Safety Report 5545494-3 (Version None)
Quarter: 2007Q4

REPORT INFORMATION
  Report Type: 
  Country: None (occurrence: None)
  Receive Date: 20071211
  Receipt Date: 20070125
  Transmission Date: 20080405
  Serious: No
  Sender: FDA-Public Use
  Company Number: US-AMGEN-KDL208674

PATIENT
  Sex: Female

DRUGS (2)
  1. ENBREL [Suspect]
     Indication: PSORIASIS
     Route: 058
     Dates: start: 20061003
  2. SORIATANE [Concomitant]
     Dates: start: 20060101

REACTIONS (3)
  - INFLUENZA [None]
  - NAUSEA [None]
  - VOMITING [None]
